FAERS Safety Report 5320763-0 (Version None)
Quarter: 2007Q2

REPORT INFORMATION
  Report Type: 
  Country: None (occurrence: None)
  Receive Date: 20070420
  Receipt Date: 20070405
  Transmission Date: 20071010
  Serious: Yes (Other)
  Sender: FDA-Public Use
  Company Number: WSDF_00628

PATIENT
  Age: 59 Year
  Sex: Female
  Weight: 72.8 kg

DRUGS (9)
  1. WINRHO SDF [Suspect]
     Indication: IDIOPATHIC THROMBOCYTOPENIC PURPURA
     Dosage: 75 UG/KG ONCE IV
     Route: 042
     Dates: start: 20061228, end: 20061228
  2. WINRHO SDF [Suspect]
     Indication: IDIOPATHIC THROMBOCYTOPENIC PURPURA
     Dosage: 75 UG/KG ONCE IV
     Route: 042
     Dates: start: 20061228, end: 20061228
  3. WINRHO SDF [Suspect]
     Indication: IDIOPATHIC THROMBOCYTOPENIC PURPURA
     Dosage: 75 UG/KG ONCE IV
     Route: 042
     Dates: start: 20061228, end: 20061228
  4. ATOMOXETINE [Concomitant]
  5. ASCORBIC ACID [Concomitant]
  6. PRAVASTATIN [Concomitant]
  7. WELLBUTRIN SR [Concomitant]
  8. CALTRATE 600/VITD 200 [Concomitant]
  9. TOPAMAX [Concomitant]

REACTIONS (2)
  - BLOOD PRESSURE DECREASED [None]
  - HAEMOLYSIS [None]
